FAERS Safety Report 5661300-0 (Version None)
Quarter: 2008Q1

REPORT INFORMATION
  Report Type: 
  Country: None (occurrence: None)
  Receive Date: 20080312
  Receipt Date: 20080229
  Transmission Date: 20080703
  Serious: Yes (Hospitalization, Other)
  Sender: FDA-Public Use
  Company Number: GB-WYE-G01181108

PATIENT
  Sex: Female

DRUGS (2)
  1. EFFEXOR [Suspect]
     Dosage: UNKNOWN
     Route: 048
     Dates: start: 19960101
  2. EFFEXOR [Suspect]
     Dosage: 37.5MG, FREQUENCY UNKNOWN
     Route: 048

REACTIONS (4)
  - DRUG DEPENDENCE [None]
  - DRUG WITHDRAWAL SYNDROME [None]
  - PALPITATIONS [None]
  - TACHYCARDIA [None]
